FAERS Safety Report 13996924 (Version 2)
Quarter: 2017Q3

REPORT INFORMATION
  Report Type: Report from Study
  Country: US (occurrence: US)
  Receive Date: 20170921
  Receipt Date: 20170929
  Transmission Date: 20171128
  Serious: Yes (Other)
  Sender: FDA-Public Use
  Company Number: US-ELI_LILLY_AND_COMPANY-US201708006016

PATIENT
  Age: 83 Year
  Sex: Female

DRUGS (1)
  1. TERIPARATIDE [Suspect]
     Active Substance: TERIPARATIDE
     Indication: OSTEOPOROSIS
     Dosage: 20 UG, UNKNOWN
     Route: 058
     Dates: start: 20170727

REACTIONS (10)
  - Feeling abnormal [Unknown]
  - Fracture [Unknown]
  - Fall [Unknown]
  - Neuralgia [Not Recovered/Not Resolved]
  - Spinal fracture [Unknown]
  - Nephrolithiasis [Recovered/Resolved]
  - Back pain [Not Recovered/Not Resolved]
  - Pain [Unknown]
  - Back disorder [Unknown]
  - Urinary tract infection bacterial [Not Recovered/Not Resolved]

NARRATIVE: CASE EVENT DATE: 20170908
